FAERS Safety Report 16953125 (Version 2)
Quarter: 2020Q2

REPORT INFORMATION
  Report Type: Spontaneous
  Country: FR (occurrence: FR)
  Receive Date: 20191023
  Receipt Date: 20200521
  Transmission Date: 20200713
  Serious: Yes (Hospitalization, Other)
  Sender: FDA-Public Use
  Company Number: FR-GLAXOSMITHKLINE-FR2019192088

PATIENT
  Age: 49 Year
  Sex: Male

DRUGS (7)
  1. URBANYL [Suspect]
     Active Substance: CLOBAZAM
     Indication: ANXIETY
     Dosage: 5 MILLIGRAM, TOTAL ; IN TOTAL
     Route: 048
     Dates: start: 20190930, end: 20190930
  2. TEGRETOL [Suspect]
     Active Substance: CARBAMAZEPINE
     Indication: MEDICATION ERROR
     Dosage: 400 MILLIGRAM, TOTAL ; IN TOTAL
     Route: 048
     Dates: start: 20190930, end: 20190930
  3. SOLIAN [Suspect]
     Active Substance: AMISULPRIDE
     Indication: MEDICATION ERROR
     Dosage: 100 MILLIGRAM, TOTAL ; IN TOTAL
     Route: 048
     Dates: start: 20190930, end: 20190930
  4. KEPPRA [Suspect]
     Active Substance: LEVETIRACETAM
     Indication: EPILEPSY
     Dosage: 1000 MILLIGRAM, TOTAL ; IN TOTAL
     Route: 048
     Dates: start: 20190930, end: 20190930
  5. RIVOTRIL [Suspect]
     Active Substance: CLONAZEPAM
     Indication: MEDICATION ERROR
     Dosage: UNK
     Route: 048
     Dates: start: 20190930, end: 20190930
  6. DEPAKINE [Suspect]
     Active Substance: VALPROATE SODIUM
     Indication: MEDICATION ERROR
     Dosage: 1000 MILLIGRAM, TOTAL ; IN TOTAL
     Route: 048
     Dates: start: 20190930, end: 20190930
  7. LAMICTAL [Suspect]
     Active Substance: LAMOTRIGINE
     Indication: EPILEPSY
     Dosage: 200 MILLIGRAM, TOTAL ; IN TOTAL
     Route: 048
     Dates: start: 20190930, end: 20190930

REACTIONS (3)
  - Altered state of consciousness [Recovered/Resolved]
  - Balance disorder [Recovered/Resolved]
  - Fall [Recovered/Resolved]

NARRATIVE: CASE EVENT DATE: 20190930
